FAERS Safety Report 8583078-3 (Version None)
Quarter: 2012Q3

REPORT INFORMATION
  Report Type: 
  Country: None (occurrence: None)
  Receive Date: 20120809
  Receipt Date: 20120802
  Transmission Date: 20120928
  Serious: Yes (Other)
  Sender: FDA-Public Use
  Company Number: PR-BAYER-2012-058559

PATIENT
  Age: 64 Year
  Sex: Male

DRUGS (3)
  1. NEXAVAR [Suspect]
     Dosage: 600 MG DAILY (200 MG Q AM AND 400 MG Q PM)
  2. NEXAVAR [Suspect]
     Dosage: 200 MG, BID
     Dates: start: 20120713
  3. NEXAVAR [Suspect]
     Indication: HEPATIC NEOPLASM MALIGNANT
     Dosage: 400 MG, BID
     Dates: start: 20120523, end: 20120629

REACTIONS (10)
  - SUBCUTANEOUS ABSCESS [None]
  - SKIN LESION [None]
  - LABORATORY TEST ABNORMAL [None]
  - WOUND [None]
  - SKIN DISCOLOURATION [None]
  - BLISTER [None]
  - LOCALISED INFECTION [None]
  - ABASIA [None]
  - SKIN WOUND [None]
  - PAIN IN EXTREMITY [None]
